FAERS Safety Report 8953858 (Version 1)
Quarter: 2012Q4

REPORT INFORMATION
  Report Type: 
  Country: DE (occurrence: DE)
  Receive Date: 20121206
  Receipt Date: 20121206
  Transmission Date: 20130627
  Serious: Yes (Congenital Anomaly)
  Sender: FDA-Public Use
  Company Number: DE-MYLANLABS-2012S1024354

PATIENT
  Age: 0 Year
  Sex: Female
  Weight: 3.2 kg

DRUGS (1)
  1. CITALOPRAM [Suspect]
     Dosage: 20 [mg/d ]/ dosage reduction to 10mg/d in the second trimester
     Route: 064

REACTIONS (2)
  - Double outlet right ventricle [Recovered/Resolved with Sequelae]
  - Exposure during pregnancy [Unknown]
